FAERS Safety Report 13895389 (Version 1)
Quarter: 2017Q3

REPORT INFORMATION
  Report Type: Spontaneous
  Country: US (occurrence: US)
  Receive Date: 20170818
  Receipt Date: 20170818
  Transmission Date: 20171127
  Serious: Yes (Other)
  Sender: FDA-Public Use
  Company Number: None

PATIENT
  Sex: Female
  Weight: 18.45 kg

DRUGS (3)
  1. MIRALAX [Suspect]
     Active Substance: POLYETHYLENE GLYCOL 3350
     Indication: CONSTIPATION
     Dosage: ?          QUANTITY:1 CAPFUL; AS NEEDED ORAL?
     Route: 048
  2. PROBIOTICS [Concomitant]
     Active Substance: PROBIOTICS NOS
  3. VITAMIN.+ MINERAL SUPPLEMENT [Concomitant]

REACTIONS (9)
  - Abnormal behaviour [None]
  - Insomnia [None]
  - Affect lability [None]
  - Anger [None]
  - Paranoia [None]
  - Obsessive-compulsive disorder [None]
  - Anxiety [None]
  - Incontinence [None]
  - Alopecia [None]

NARRATIVE: CASE EVENT DATE: 20130101
